FAERS Safety Report 9610381 (Version 2)
Quarter: 2013Q4

REPORT INFORMATION
  Report Type: Spontaneous
  Country: EC (occurrence: EC)
  Receive Date: 20131009
  Receipt Date: 20131018
  Transmission Date: 20140711
  Serious: Yes (Hospitalization)
  Sender: FDA-Public Use
  Company Number: EC-PFIZER INC-2013287627

PATIENT
  Age: 12 Year
  Sex: Male

DRUGS (1)
  1. GENOTROPIN [Suspect]
     Indication: RENAL FAILURE
     Dosage: 1.5 MG, 1X/DAY
     Route: 058
     Dates: start: 201306, end: 201310

REACTIONS (1)
  - Pulmonary embolism [Recovering/Resolving]
